FAERS Safety Report 7509610-6 (Version None)
Quarter: 2011Q2

REPORT INFORMATION
  Report Type: 
  Country: None (occurrence: None)
  Receive Date: 20110519
  Receipt Date: 20110505
  Transmission Date: 20111010
  Serious: Yes (Hospitalization, Other)
  Sender: FDA-Public Use
  Company Number: 2011MA005462

PATIENT
  Age: 8 Month
  Sex: Female

DRUGS (1)
  1. PHENOBARBITAL TAB [Suspect]

REACTIONS (8)
  - LOSS OF CONSCIOUSNESS [None]
  - COMA [None]
  - HYPOREFLEXIA [None]
  - STATUS EPILEPTICUS [None]
  - CEREBRAL HAEMANGIOMA [None]
  - CEREBRAL DISORDER [None]
  - MYOCLONUS [None]
  - BACILLARY ANGIOMATOSIS [None]
